FAERS Safety Report 25450468 (Version 1)
Quarter: 2025Q2

REPORT INFORMATION
  Report Type: Spontaneous
  Country: US (occurrence: None)
  Receive Date: 20250617
  Receipt Date: 20250617
  Transmission Date: 20250717
  Serious: No
  Sender: FDA-CTU
  Company Number: None

PATIENT
  Age: 86 Year
  Sex: Male
  Weight: 81.65 kg

DRUGS (14)
  1. VANRAFIA [Suspect]
     Active Substance: ATRASENTAN HYDROCHLORIDE
     Indication: Glomerulonephritis
     Dosage: 0.75 MG DAILY ORAL ?
     Route: 048
     Dates: start: 20250531
  2. AMLODIPINE [Concomitant]
     Active Substance: AMLODIPINE BESYLATE
  3. ANORO ELLIPTA [Concomitant]
     Active Substance: UMECLIDINIUM BROMIDE\VILANTEROL TRIFENATATE
  4. CARVEDILOL [Concomitant]
     Active Substance: CARVEDILOL
  5. CETIRIZINE [Concomitant]
     Active Substance: CETIRIZINE HYDROCHLORIDE
  6. Clopodogrel [Concomitant]
  7. ELIQUIS [Concomitant]
     Active Substance: APIXABAN
  8. LATANOPROST [Concomitant]
     Active Substance: LATANOPROST
  9. MELATONIN [Concomitant]
     Active Substance: MELATONIN
  10. MIRTAZAPINE [Concomitant]
     Active Substance: MIRTAZAPINE
  11. PANTOPRAZOLE [Concomitant]
     Active Substance: PANTOPRAZOLE
  12. PREDNISONE [Concomitant]
     Active Substance: PREDNISONE
  13. ROSUVASTATIN [Concomitant]
     Active Substance: ROSUVASTATIN
  14. Timolol Malteate [Concomitant]

REACTIONS (5)
  - Decreased appetite [None]
  - Disorientation [None]
  - Fatigue [None]
  - Nausea [None]
  - Confusional state [None]
